FAERS Safety Report 6989210-7 (Version None)
Quarter: 2010Q3

REPORT INFORMATION
  Report Type: 
  Country: None (occurrence: None)
  Receive Date: 20100916
  Receipt Date: 20091016
  Transmission Date: 20110219
  Serious: Yes (Other)
  Sender: FDA-Public Use
  Company Number: FR-PFIZER INC-2009263589

PATIENT
  Sex: Male

DRUGS (4)
  1. LYRICA [Suspect]
     Indication: PAIN
     Dosage: 25 MG, 2X/DAY
     Dates: start: 20080625, end: 20081201
  2. LYRICA [Suspect]
     Dosage: 150 MG, 2X/DAY
     Dates: end: 20090901
  3. KARDEGIC [Concomitant]
     Indication: STENT PLACEMENT
     Dosage: UNK
  4. PLAVIX [Concomitant]

REACTIONS (1)
  - CHORIORETINITIS [None]
